FAERS Safety Report 24540678 (Version 2)
Quarter: 2024Q4

REPORT INFORMATION
  Report Type: Spontaneous
  Country: CN (occurrence: CN)
  Receive Date: 20241023
  Receipt Date: 20241031
  Transmission Date: 20250115
  Serious: Yes (Hospitalization)
  Sender: SANDOZ
  Company Number: CN-002147023-NVSC2024CN203575

PATIENT
  Age: 10 Year
  Sex: Female
  Weight: 35 kg

DRUGS (5)
  1. DEXAMETHASONE\TOBRAMYCIN [Suspect]
     Active Substance: DEXAMETHASONE\TOBRAMYCIN
     Indication: Antiinflammatory therapy
     Dosage: 0.1 G, QD (ONCE A NIGHT)
     Route: 047
     Dates: start: 20241002, end: 20241012
  2. DEXAMETHASONE\TOBRAMYCIN [Suspect]
     Active Substance: DEXAMETHASONE\TOBRAMYCIN
     Dosage: 0.5 G, QD (ONCE A NIGHT)
     Route: 065
  3. DICLOFENAC [Concomitant]
     Active Substance: DICLOFENAC
     Indication: Product used for unknown indication
     Dosage: UNK, QID
     Route: 065
     Dates: start: 20241002
  4. LEVOFLOXACIN [Concomitant]
     Active Substance: LEVOFLOXACIN
     Dosage: 1 DRP, QD (RIGHT EYE, DRIPPING EYE)
     Route: 065
  5. LEVOFLOXACIN [Concomitant]
     Active Substance: LEVOFLOXACIN
     Indication: Product used for unknown indication
     Dosage: UNK, QID
     Route: 065
     Dates: start: 20241002

REACTIONS (4)
  - Visual acuity reduced [Unknown]
  - Eye disorder [Unknown]
  - Intraocular pressure increased [Recovering/Resolving]
  - Glaucoma [Unknown]

NARRATIVE: CASE EVENT DATE: 20241012
